FAERS Safety Report 9250162 (Version 2)
Quarter: 2013Q2

REPORT INFORMATION
  Report Type: Report from Study
  Country: PT (occurrence: PT)
  Receive Date: 20130424
  Receipt Date: 20130429
  Transmission Date: 20140414
  Serious: Yes (Other)
  Sender: FDA-Public Use
  Company Number: PT-ROCHE-1214496

PATIENT
  Age: 63 Year
  Sex: Female

DRUGS (27)
  1. ADALIMUMAB [Suspect]
     Indication: RHEUMATOID ARTHRITIS
     Route: 058
     Dates: start: 20121010
  2. ACID FOLIC [Concomitant]
     Route: 048
     Dates: start: 20101019
  3. ISONIAZID [Concomitant]
     Dosage: EVERYDAY
     Route: 048
     Dates: start: 20120901
  4. FENOFIBRATE [Concomitant]
     Indication: DYSLIPIDAEMIA
     Route: 048
     Dates: start: 20110204
  5. LEVOTHYROXINE SODIUM [Concomitant]
     Indication: HYPOTHYROIDISM
     Route: 048
     Dates: start: 2010
  6. IRON SULFATE [Concomitant]
     Indication: ANAEMIA
     Route: 065
     Dates: start: 20101019
  7. FLUNARIZINE [Concomitant]
     Indication: MIGRAINE
     Route: 065
     Dates: start: 2010
  8. INDAPAMIDE [Concomitant]
     Indication: HYPERTENSION
     Route: 048
     Dates: start: 2010
  9. ALENDRONIC ACID/CHOLECALCIFEROL [Concomitant]
     Route: 065
     Dates: start: 2010, end: 2012
  10. BRIMONIDINE TARTRATE/TIMOLOL [Concomitant]
     Indication: GLAUCOMA
     Route: 065
     Dates: start: 2008
  11. BRINZOLAMIDE [Concomitant]
     Indication: GLAUCOMA
     Route: 065
     Dates: start: 2010
  12. BRINZOLAMIDE [Concomitant]
     Route: 065
     Dates: start: 1900
  13. OMEPRAZOLE [Concomitant]
     Dosage: EVERYDAY
     Route: 048
     Dates: start: 200909
  14. METFORMIN [Concomitant]
     Indication: DIABETES MELLITUS
     Route: 065
     Dates: start: 2009, end: 2012
  15. ESTAZOLAM [Concomitant]
     Indication: INSOMNIA
     Route: 065
     Dates: start: 201205
  16. SITAGLIPTINA/METFORMINA [Concomitant]
     Indication: DIABETES MELLITUS
     Route: 065
     Dates: start: 2012
  17. DULOXETINE [Concomitant]
     Indication: DEPRESSION
     Route: 065
     Dates: start: 201205
  18. PREGABALIN [Concomitant]
     Indication: PAIN
     Route: 048
     Dates: start: 20120531
  19. ALPRAZOLAM [Concomitant]
     Indication: ANXIETY
     Route: 065
     Dates: start: 201205
  20. METHOTREXATE [Concomitant]
     Indication: RHEUMATOID ARTHRITIS
     Route: 048
     Dates: start: 20111017
  21. HYDROXYCHLOROQUINE [Concomitant]
     Indication: RHEUMATOID ARTHRITIS
     Dosage: EVERY DAY
     Route: 048
     Dates: start: 20120630
  22. HUMIRA [Concomitant]
     Indication: RHEUMATOID ARTHRITIS
     Route: 058
     Dates: start: 20121010
  23. ASCORBIC ACID [Concomitant]
     Indication: PAIN
     Route: 048
     Dates: start: 2011
  24. OXYBUTYNIN [Concomitant]
     Indication: URGE INCONTINENCE
     Route: 048
     Dates: start: 2012
  25. PREDNISOLONE [Concomitant]
     Indication: RHEUMATOID ARTHRITIS
     Route: 048
  26. IRON SULFATE [Concomitant]
     Indication: ANAEMIA
     Route: 065
     Dates: start: 20101019, end: 2012
  27. FLUNARIZINE [Concomitant]
     Indication: MIGRAINE
     Route: 065
     Dates: start: 2010, end: 2012

REACTIONS (1)
  - Acute coronary syndrome [Recovered/Resolved]
